FAERS Safety Report 10429517 (Version 1)
Quarter: 2014Q3

REPORT INFORMATION
  Report Type: Spontaneous
  Country: US (occurrence: None)
  Receive Date: 20140902
  Receipt Date: 20140902
  Transmission Date: 20150326
  Serious: No
  Sender: FDA-Public Use
  Company Number: None

PATIENT
  Age: 46 Year
  Sex: Female
  Weight: 63.96 kg

DRUGS (1)
  1. TRANSDERM SCOP [Suspect]
     Active Substance: SCOPOLAMINE
     Indication: PRODUCT USED FOR UNKNOWN INDICATION
     Dates: start: 20140818, end: 20140825

REACTIONS (7)
  - Nausea [None]
  - Vertigo [None]
  - Vomiting [None]
  - Dizziness [None]
  - Gait disturbance [None]
  - Economic problem [None]
  - Impaired work ability [None]

NARRATIVE: CASE EVENT DATE: 20140825
